FAERS Safety Report 25322370 (Version 1)
Quarter: 2025Q2

REPORT INFORMATION
  Report Type: Spontaneous
  Country: US (occurrence: US)
  Receive Date: 20250516
  Receipt Date: 20250516
  Transmission Date: 20250717
  Serious: Yes (Hospitalization)
  Sender: DOMPE FARMACEUTICI
  Company Number: US-FARMAPROD-202505-1494

PATIENT
  Sex: Female

DRUGS (20)
  1. OXERVATE [Suspect]
     Active Substance: CENEGERMIN-BKBJ
     Indication: Neurotrophic keratopathy
     Route: 047
     Dates: start: 20250409
  2. DAPTOMYCIN [Concomitant]
     Active Substance: DAPTOMYCIN
  3. CEFTRIAXONE [Concomitant]
     Active Substance: CEFTRIAXONE
  4. CELECOXIB [Concomitant]
     Active Substance: CELECOXIB
  5. HUMALOG KWIKPEN [Concomitant]
     Active Substance: INSULIN LISPRO
  6. BUMETANIDE [Concomitant]
     Active Substance: BUMETANIDE
  7. PREGABALIN [Concomitant]
     Active Substance: PREGABALIN
  8. PREGABALIN [Concomitant]
     Active Substance: PREGABALIN
  9. DULOXETINE HYDROCHLORIDE [Concomitant]
     Active Substance: DULOXETINE HYDROCHLORIDE
  10. DULOXETINE HYDROCHLORIDE [Concomitant]
     Active Substance: DULOXETINE HYDROCHLORIDE
  11. GABAPENTIN [Concomitant]
     Active Substance: GABAPENTIN
  12. NYSTATIN [Concomitant]
     Active Substance: NYSTATIN
  13. OZEMPIC [Concomitant]
     Active Substance: SEMAGLUTIDE
  14. ROPINIROLE HYDROCHLORIDE [Concomitant]
     Active Substance: ROPINIROLE HYDROCHLORIDE
  15. ACTOS [Concomitant]
     Active Substance: PIOGLITAZONE HYDROCHLORIDE
  16. CYCLOBENZAPRINE HYDROCHLORIDE [Concomitant]
     Active Substance: CYCLOBENZAPRINE HYDROCHLORIDE
  17. BACLOFEN [Concomitant]
     Active Substance: BACLOFEN
  18. RESTASIS [Concomitant]
     Active Substance: CYCLOSPORINE
  19. ONDANSETRON HYDROCHLORIDE [Concomitant]
     Active Substance: ONDANSETRON HYDROCHLORIDE
  20. ZOLPIDEM TARTRATE [Concomitant]
     Active Substance: ZOLPIDEM TARTRATE

REACTIONS (3)
  - Hospitalisation [Unknown]
  - Product dose omission issue [Unknown]
  - Pain [Unknown]
